FAERS Safety Report 12925665 (Version 1)
Quarter: 2016Q4

REPORT INFORMATION
  Report Type: Spontaneous
  Country: US (occurrence: US)
  Receive Date: 20161109
  Receipt Date: 20161109
  Transmission Date: 20170207
  Serious: No
  Sender: FDA-Public Use
  Company Number: US-SHIRE-US201615510

PATIENT
  Age: 69 Year
  Sex: Female
  Weight: 74.38 kg

DRUGS (2)
  1. ZYRTEC [Concomitant]
     Active Substance: CETIRIZINE HYDROCHLORIDE
     Indication: SEASONAL ALLERGY
     Dosage: UNK
  2. XIIDRA [Suspect]
     Active Substance: LIFITEGRAST
     Indication: DRY EYE
     Dosage: 1 GTT, 2X/DAY:BID;5% SOLUTION
     Dates: start: 20161019, end: 20161020

REACTIONS (5)
  - Ocular discomfort [Recovering/Resolving]
  - Vision blurred [Recovering/Resolving]
  - Blood pressure increased [Recovering/Resolving]
  - Eye irritation [Recovering/Resolving]
  - Headache [Recovering/Resolving]

NARRATIVE: CASE EVENT DATE: 20161020
